FAERS Safety Report 5090565-1 (Version None)
Quarter: 2006Q3

REPORT INFORMATION
  Report Type: 
  Country: None (occurrence: None)
  Receive Date: 20060828
  Receipt Date: 20060607
  Transmission Date: 20061208
  Serious: No
  Sender: FDA-Public Use
  Company Number: US-GLAXOSMITHKLINE-A0608244A

PATIENT
  Age: 29 Year
  Sex: Female

DRUGS (2)
  1. WELLBUTRIN XL [Suspect]
     Indication: DEPRESSION
     Dosage: 300MG PER DAY
     Route: 048
     Dates: start: 20060522
  2. VITAMINS [Concomitant]

REACTIONS (5)
  - ABDOMINAL PAIN UPPER [None]
  - ALOPECIA [None]
  - DIARRHOEA [None]
  - DRY SKIN [None]
  - FLATULENCE [None]
